FAERS Safety Report 17828416 (Version 1)
Quarter: 2020Q2

REPORT INFORMATION
  Report Type: Spontaneous
  Country: US (occurrence: US)
  Receive Date: 20200527
  Receipt Date: 20200527
  Transmission Date: 20200714
  Serious: Yes (Hospitalization)
  Sender: FDA-Public Use
  Company Number: None

PATIENT
  Sex: Male
  Weight: 64.6 kg

DRUGS (2)
  1. CARBOPLATIN (241240) [Suspect]
     Active Substance: CARBOPLATIN
     Dates: end: 20200427
  2. ALIMTA [Suspect]
     Active Substance: PEMETREXED DISODIUM
     Dates: end: 20200427

REACTIONS (2)
  - Neutrophil count decreased [None]
  - Therapy interrupted [None]

NARRATIVE: CASE EVENT DATE: 20200515
